FAERS Safety Report 8822249 (Version 5)
Quarter: 2012Q4

REPORT INFORMATION
  Report Type: 
  Country: US (occurrence: US)
  Receive Date: 20121003
  Receipt Date: 20121213
  Transmission Date: 20130627
  Serious: No
  Sender: FDA-Public Use
  Company Number: US-PFIZER INC-2012241796

PATIENT
  Sex: Female

DRUGS (3)
  1. NORVASC [Suspect]
     Indication: HYPERTENSION
     Dosage: 2.5 mg, daily
  2. NORVASC [Suspect]
     Dosage: 5 mg, UNK
  3. NORVASC [Suspect]
     Dosage: 2.5 mg, UNK

REACTIONS (2)
  - Blood pressure fluctuation [Unknown]
  - Oedema [Recovering/Resolving]
